FAERS Safety Report 23771225 (Version 2)
Quarter: 2024Q2

REPORT INFORMATION
  Report Type: Report from Study
  Country: US (occurrence: US)
  Receive Date: 20240423
  Receipt Date: 20240607
  Transmission Date: 20240717
  Serious: Yes (Other)
  Sender: FDA-Public Use
  Company Number: US-ACADIA PHARMACEUTICALS INC.-ACA-2024-PIM-001611

PATIENT
  Sex: Male

DRUGS (1)
  1. NUPLAZID [Suspect]
     Active Substance: PIMAVANSERIN TARTRATE
     Indication: Parkinson^s disease psychosis
     Dosage: 34 MILLIGRAM, QD
     Route: 048

REACTIONS (7)
  - Faecaloma [Unknown]
  - Knee arthroplasty [Unknown]
  - Dyspepsia [Unknown]
  - Colostomy [Unknown]
  - Arthritis [Unknown]
  - Seasonal allergy [Unknown]
  - Tooth fracture [Not Recovered/Not Resolved]
